FAERS Safety Report 19840218 (Version 1)
Quarter: 2021Q3

REPORT INFORMATION
  Report Type: Spontaneous
  Country: US (occurrence: US)
  Receive Date: 20210916
  Receipt Date: 20210916
  Transmission Date: 20211014
  Serious: Yes (Life-Threatening, Hospitalization, Other)
  Sender: FDA-Public Use
  Company Number: None

PATIENT
  Age: 35 Year
  Sex: Male
  Weight: 112 kg

DRUGS (3)
  1. ENOXAPARIN 40 MG [Concomitant]
     Active Substance: ENOXAPARIN
     Dates: start: 20210904, end: 20210914
  2. BARICITINIB. [Suspect]
     Active Substance: BARICITINIB
     Indication: COVID-19
     Route: 048
  3. DEXAMETHASONE 6 MG [Concomitant]
     Dates: start: 20210904, end: 20210912

REACTIONS (3)
  - Superinfection bacterial [None]
  - Cardiac ventricular thrombosis [None]
  - Pneumonia [None]

NARRATIVE: CASE EVENT DATE: 20210914
